FAERS Safety Report 23963359 (Version 2)
Quarter: 2024Q3

REPORT INFORMATION
  Report Type: Spontaneous
  Country: US (occurrence: US)
  Receive Date: 20240611
  Receipt Date: 20240711
  Transmission Date: 20241017
  Serious: No
  Sender: PFIZER
  Company Number: US-PFIZER INC-202400189556

PATIENT
  Age: 9 Year
  Sex: Female

DRUGS (1)
  1. NGENLA [Suspect]
     Active Substance: SOMATROGON-GHLA
     Dosage: 15 MG
     Dates: start: 20240607

REACTIONS (2)
  - Injection site pain [Unknown]
  - Crying [Unknown]

NARRATIVE: CASE EVENT DATE: 20240607
